FAERS Safety Report 8063406-8 (Version None)
Quarter: 2012Q1

REPORT INFORMATION
  Report Type: 
  Country: None (occurrence: None)
  Receive Date: 20120118
  Receipt Date: 20120109
  Transmission Date: 20120608
  Serious: Yes (Life-Threatening, Hospitalization, Disabling, Other)
  Sender: FDA-Public Use
  Company Number: 2011SP051117

PATIENT
  Age: 58 Year
  Sex: Female

DRUGS (4)
  1. NASONEX [Suspect]
     Indication: ASTHMA
  2. NASONEX [Suspect]
     Indication: MULTIPLE ALLERGIES
  3. ASTELIN [Concomitant]
  4. ALBUTEROL [Concomitant]

REACTIONS (8)
  - PRODUCT ODOUR ABNORMAL [None]
  - CONVULSION [None]
  - PRODUCT TASTE ABNORMAL [None]
  - LOSS OF CONSCIOUSNESS [None]
  - WRONG TECHNIQUE IN DRUG USAGE PROCESS [None]
  - LACERATION [None]
  - CONTUSION [None]
  - VISION BLURRED [None]
